FAERS Safety Report 12592516 (Version 1)
Quarter: 2016Q3

REPORT INFORMATION
  Report Type: Report from Study
  Country: HU (occurrence: HU)
  Receive Date: 20160726
  Receipt Date: 20160726
  Transmission Date: 20161109
  Serious: Yes (Hospitalization)
  Sender: FDA-Public Use
  Company Number: PHHO2009HU019176

PATIENT
  Age: 62 Year
  Sex: Male
  Weight: 93 kg

DRUGS (4)
  1. COMPARATOR OFATUMUMAB [Suspect]
     Active Substance: OFATUMUMAB
     Dosage: UNK
     Route: 065
     Dates: start: 20090324
  2. OFATUMUMAB [Suspect]
     Active Substance: OFATUMUMAB
     Dosage: 700 MG,
     Route: 042
     Dates: start: 20080703
  3. OFATUMUMAB [Suspect]
     Active Substance: OFATUMUMAB
     Indication: RHEUMATOID ARTHRITIS
     Dosage: 700 MG,
     Route: 042
     Dates: start: 20080619
  4. COMPARATOR OFATUMUMAB [Suspect]
     Active Substance: OFATUMUMAB
     Indication: RHEUMATOID ARTHRITIS
     Dosage: UNK
     Route: 065
     Dates: start: 20090310

REACTIONS (1)
  - Gingival cancer [Recovered/Resolved with Sequelae]

NARRATIVE: CASE EVENT DATE: 20090709
